FAERS Safety Report 10026001 (Version 1)
Quarter: 2014Q1

REPORT INFORMATION
  Report Type: Spontaneous
  Country: FR (occurrence: None)
  Receive Date: 20140318
  Receipt Date: 20140318
  Transmission Date: 20141002
  Serious: Yes (Other)
  Sender: FDA-Public Use
  Company Number: 2014-000692

PATIENT
  Age: 59 Year
  Sex: Female

DRUGS (7)
  1. ACTONEL (RISEDRONATE SODIUM) TABLET, UNKMG [Suspect]
     Dosage: DOSAGE/FREQUENCY UNKNOWN, ORAL
     Route: 048
     Dates: end: 201301
  2. MABTHERA [Suspect]
     Indication: RHEUMATOID ARTHRITIS
     Dosage: 1 INFUSION EVERY 6 MONTHS, INTRAVENOUS
     Route: 042
     Dates: start: 2006
  3. METHOTREXATE (METHOTREXATE) [Suspect]
     Indication: RHEUMATOID ARTHRITIS
     Route: 048
  4. LEVOTHYROX [Suspect]
     Dosage: DOSAGE/FREQUENCY UNKNOWN, ORAL
     Route: 048
  5. SPECIAFOLDINE (FOLIC ACID) [Suspect]
     Dosage: DOSAGE/FREQUENCY UNKNOWN, ORAL
     Route: 048
  6. TRAMADOL (TRAMADOL) [Suspect]
     Dosage: DOSAGE/FREQUENCY UNKNOWN, ORAL
  7. TAHOR (ATORVASTATIN CALCIUM) [Suspect]
     Dosage: DOSAGE/FREQUENCY UNKNOWN, ORAL
     Route: 048

REACTIONS (2)
  - Deafness neurosensory [None]
  - Vestibular disorder [None]
